FAERS Safety Report 10746057 (Version 2)
Quarter: 2015Q1

REPORT INFORMATION
  Report Type: Spontaneous
  Country: US (occurrence: US)
  Receive Date: 20150128
  Receipt Date: 20150205
  Transmission Date: 20150721
  Serious: Yes (Hospitalization, Other)
  Sender: FDA-Public Use
  Company Number: US-TAKEDA-2015TUS000985

PATIENT
  Sex: Female

DRUGS (1)
  1. BRINTELLIX [Suspect]
     Active Substance: VORTIOXETINE HYDROBROMIDE
     Indication: BIPOLAR I DISORDER
     Dosage: UNK
     Route: 065
     Dates: start: 201410

REACTIONS (8)
  - Confusional state [Recovering/Resolving]
  - Product use issue [Recovered/Resolved]
  - Headache [Recovered/Resolved]
  - Blood sodium abnormal [Recovered/Resolved]
  - Suicidal behaviour [Recovering/Resolving]
  - Memory impairment [Recovered/Resolved]
  - Hyponatraemia [Recovered/Resolved]
  - Anger [Recovering/Resolving]

NARRATIVE: CASE EVENT DATE: 2014
